FAERS Safety Report 19492802 (Version 2)
Quarter: 2021Q3

REPORT INFORMATION
  Report Type: Spontaneous
  Country: US (occurrence: US)
  Receive Date: 20210705
  Receipt Date: 20210913
  Transmission Date: 20211014
  Serious: No
  Sender: FDA-Public Use
  Company Number: US-BIOVITRUM-DOV-001040

PATIENT
  Age: 65 Year
  Sex: Male

DRUGS (3)
  1. DOPTELET [Suspect]
     Active Substance: AVATROMBOPAG MALEATE
     Dosage: 40 MILLIGRAM, QD
     Route: 048
  2. DOPTELET [Suspect]
     Active Substance: AVATROMBOPAG MALEATE
     Route: 048
     Dates: start: 20210630
  3. DOPTELET [Suspect]
     Active Substance: AVATROMBOPAG MALEATE
     Indication: IMMUNE THROMBOCYTOPENIA
     Dosage: 20 MILLIGRAM, QD
     Route: 048

REACTIONS (5)
  - Serum ferritin decreased [Recovering/Resolving]
  - Drug ineffective [Unknown]
  - Fatigue [Unknown]
  - Platelet count decreased [Unknown]
  - Headache [Unknown]

NARRATIVE: CASE EVENT DATE: 20210604
